FAERS Safety Report 20742311 (Version 1)
Quarter: 2022Q2

REPORT INFORMATION
  Report Type: Spontaneous
  Country: US (occurrence: US)
  Receive Date: 20220424
  Receipt Date: 20220424
  Transmission Date: 20220720
  Serious: No
  Sender: FDA-Public Use
  Company Number: US-TEVA-2022-US-2022344

PATIENT
  Sex: Female

DRUGS (2)
  1. LORAZEPAM [Suspect]
     Active Substance: LORAZEPAM
     Indication: Sleep disorder
     Route: 065
     Dates: start: 20220323
  2. LORAZEPAM [Suspect]
     Active Substance: LORAZEPAM
     Indication: Dizziness
     Route: 065

REACTIONS (3)
  - Headache [Not Recovered/Not Resolved]
  - Product use in unapproved indication [Unknown]
  - Wrong technique in product usage process [Unknown]

NARRATIVE: CASE EVENT DATE: 20220324
